FAERS Safety Report 25369968 (Version 4)
Quarter: 2025Q3

REPORT INFORMATION
  Report Type: Report from Study
  Country: PH (occurrence: PH)
  Receive Date: 20250528
  Receipt Date: 20250710
  Transmission Date: 20251021
  Serious: Yes (Other)
  Sender: PFIZER
  Company Number: PH-TAKEDA-2025TUS048357

PATIENT
  Age: 29 Year
  Sex: Male

DRUGS (1)
  1. ADCETRIS [Suspect]
     Active Substance: BRENTUXIMAB VEDOTIN
     Indication: Hodgkin^s disease refractory
     Dosage: 150 MILLIGRAM, Q3WEEKS
     Route: 042

REACTIONS (3)
  - Gingival swelling [Recovering/Resolving]
  - Tooth erosion [Recovering/Resolving]
  - Tooth disorder [Unknown]
